FAERS Safety Report 21443909 (Version 2)
Quarter: 2022Q4

REPORT INFORMATION
  Report Type: Report from Study
  Country: US (occurrence: US)
  Receive Date: 20221012
  Receipt Date: 20221014
  Transmission Date: 20230113
  Serious: Yes (Hospitalization)
  Sender: FDA-Public Use
  Company Number: US-NOVARTISPH-NVSC2022US223402

PATIENT
  Age: 85 Year
  Sex: Female
  Weight: 86.2 kg

DRUGS (12)
  1. ENTRESTO [Suspect]
     Active Substance: SACUBITRIL\VALSARTAN
     Indication: Cardiac failure acute
     Dosage: UNK
     Route: 048
     Dates: start: 20220503
  2. LIDOCAINE [Concomitant]
     Active Substance: LIDOCAINE
     Indication: Pain in extremity
     Dosage: ADHESIVE PATCH, MEDICATED MATCH
     Route: 065
     Dates: start: 20201231
  3. LIDOCAINE [Concomitant]
     Active Substance: LIDOCAINE
     Indication: Arthralgia
  4. ANTIVERT [Concomitant]
     Active Substance: MECLIZINE HYDROCHLORIDE
     Indication: Hypersensitivity
     Dosage: UNK
     Route: 065
     Dates: start: 20191216
  5. NORVASC [Concomitant]
     Active Substance: AMLODIPINE BESYLATE
     Indication: Hypertension
     Dosage: UNK
     Route: 065
     Dates: start: 20120301
  6. ELIQUIS [Concomitant]
     Active Substance: APIXABAN
     Indication: Atrial fibrillation
     Dosage: UNK
     Route: 065
     Dates: start: 20130702
  7. LIPITOR [Concomitant]
     Active Substance: ATORVASTATIN CALCIUM
     Indication: Blood cholesterol
     Dosage: UNK
     Route: 065
     Dates: start: 20130925
  8. POLYETHYLENE GLYCOL 3350 [Concomitant]
     Active Substance: POLYETHYLENE GLYCOL 3350
     Indication: General physical condition
     Dosage: UNK
     Route: 065
     Dates: start: 20220407
  9. DEMADEX [Concomitant]
     Active Substance: TORSEMIDE
     Indication: Cardiac failure
     Dosage: UNK
     Route: 065
     Dates: start: 20220330
  10. PANTOPRAZOLE [Concomitant]
     Active Substance: PANTOPRAZOLE
     Indication: Gastrooesophageal reflux disease
     Dosage: UNK
     Route: 065
     Dates: start: 20220606
  11. FORMOTEROL [Concomitant]
     Active Substance: FORMOTEROL
     Indication: Asthma
     Dosage: UNK
     Route: 065
     Dates: start: 20220606
  12. GABAPENTIN [Concomitant]
     Active Substance: GABAPENTIN
     Indication: Cerebrovascular accident
     Dosage: UNK
     Route: 065
     Dates: start: 20220606

REACTIONS (1)
  - Hypotension [Recovered/Resolved]

NARRATIVE: CASE EVENT DATE: 20220808
